FAERS Safety Report 15014593 (Version 1)
Quarter: 2018Q2

REPORT INFORMATION
  Report Type: Report from Study
  Country: JP (occurrence: JP)
  Receive Date: 20180615
  Receipt Date: 20180615
  Transmission Date: 20180711
  Serious: Yes (Death, Hospitalization, Disabling, Other)
  Sender: FDA-Public Use
  Company Number: JP-B.I. PHARMACEUTICALS,INC./RIDGEFIELD-2017-NB-003748

PATIENT
  Age: 82 Year
  Sex: Male
  Weight: 54 kg

DRUGS (7)
  1. BIBF 1120 [Suspect]
     Active Substance: NINTEDANIB
     Indication: IDIOPATHIC PULMONARY FIBROSIS
     Route: 065
     Dates: start: 20160213, end: 20170714
  2. PREDONINE [Concomitant]
     Active Substance: PREDNISOLONE
     Route: 065
     Dates: start: 20160405, end: 20160418
  3. PREDONINE [Concomitant]
     Active Substance: PREDNISOLONE
     Indication: IDIOPATHIC PULMONARY FIBROSIS
     Route: 065
     Dates: start: 20160213, end: 20160307
  4. PREDONINE [Concomitant]
     Active Substance: PREDNISOLONE
     Route: 065
     Dates: start: 20160308, end: 20160404
  5. PREDONINE [Concomitant]
     Active Substance: PREDNISOLONE
     Route: 065
     Dates: start: 20160419, end: 20160510
  6. PREDONINE [Concomitant]
     Active Substance: PREDNISOLONE
     Route: 065
     Dates: start: 20160511, end: 20160606
  7. PREDONINE [Concomitant]
     Active Substance: PREDNISOLONE
     Route: 065
     Dates: start: 20160607, end: 20160705

REACTIONS (4)
  - Pneumonia aspiration [Fatal]
  - Atypical mycobacterial infection [Not Recovered/Not Resolved]
  - Pneumomediastinum [Unknown]
  - Impetigo [Recovered/Resolved]

NARRATIVE: CASE EVENT DATE: 20161206
